FAERS Safety Report 5786806-5 (Version None)
Quarter: 2008Q2

REPORT INFORMATION
  Report Type: 
  Country: None (occurrence: None)
  Receive Date: 20080620
  Receipt Date: 20080520
  Transmission Date: 20081010
  Serious: Yes (Other)
  Sender: FDA-Public Use
  Company Number: 2008015981

PATIENT
  Sex: Male

DRUGS (1)
  1. ZYRTEC [Suspect]
     Indication: SINUSITIS
     Dosage: ORAL
     Route: 048

REACTIONS (6)
  - ORAL DISORDER [None]
  - PAINFUL RESPIRATION [None]
  - PHARYNGEAL OEDEMA [None]
  - STOMATITIS [None]
  - TONGUE DISORDER [None]
  - VOCAL CORD POLYP [None]
